FAERS Safety Report 5454126-4 (Version None)
Quarter: 2007Q3

REPORT INFORMATION
  Report Type: 
  Country: None (occurrence: None)
  Receive Date: 20070917
  Receipt Date: 20070905
  Transmission Date: 20080115
  Serious: Yes (Hospitalization, Disabling)
  Sender: FDA-Public Use
  Company Number: MX-ROCHE-374916

PATIENT
  Age: 20 Year
  Sex: Female
  Weight: 71 kg

DRUGS (16)
  1. DACLIZUMAB [Suspect]
     Dosage: 2 MG /KG FIRST DOSE 24 HOURS PRE-TRANSPLANT FOLLOWED BY 1 MG/KG EVERY TWO WEEKS FOR FOUR DOSES.
     Route: 042
     Dates: start: 20040520, end: 20040520
  2. DACLIZUMAB [Suspect]
     Route: 042
     Dates: start: 20040604, end: 20040604
  3. DACLIZUMAB [Suspect]
     Route: 042
     Dates: start: 20040616, end: 20040616
  4. DACLIZUMAB [Suspect]
     Route: 042
     Dates: start: 20040702, end: 20040702
  5. DACLIZUMAB [Suspect]
     Route: 042
     Dates: start: 20040715, end: 20040715
  6. MYCOPHENOLATE MOFETIL [Suspect]
     Route: 048
     Dates: start: 20040520, end: 20040714
  7. MYCOPHENOLATE MOFETIL [Suspect]
     Route: 048
     Dates: start: 20040714
  8. TACROLIMUS [Suspect]
     Route: 048
     Dates: start: 20040526
  9. TACROLIMUS [Suspect]
     Route: 048
     Dates: start: 20040716
  10. PREDNISONE [Suspect]
     Route: 048
     Dates: start: 20040702
  11. CALCIUM CARBONATE [Concomitant]
     Dates: start: 20040702
  12. METOPROLOL SUCCINATE [Concomitant]
     Route: 048
     Dates: start: 20040524
  13. PRAVASTATIN [Concomitant]
     Route: 048
     Dates: start: 20040524
  14. SULFAMETHOXAZOL [Concomitant]
     Route: 048
     Dates: start: 20040604
  15. TRIMETHOPRIM [Concomitant]
     Route: 048
     Dates: start: 20040604
  16. OMEPRAZOLE [Concomitant]
     Route: 048
     Dates: start: 20040714

REACTIONS (2)
  - CYTOMEGALOVIRUS INFECTION [None]
  - GASTRIC ULCER [None]
